FAERS Safety Report 5005610-9 (Version None)
Quarter: 2006Q2

REPORT INFORMATION
  Report Type: 
  Country: None (occurrence: None)
  Receive Date: 20060517
  Receipt Date: 20060517
  Transmission Date: 20061013
  Serious: Yes (Life-Threatening, Hospitalization)
  Sender: FDA-Public Use
  Company Number: None

PATIENT
  Age: 57 Year
  Sex: Male
  Weight: 123.3784 kg

DRUGS (16)
  1. EQUETRO [Suspect]
     Indication: BIPOLAR DISORDER
     Dosage: 200MG   TID   PO
     Route: 048
     Dates: start: 20060405, end: 20060511
  2. MICARDIS HCT [Concomitant]
  3. LIPITOR [Concomitant]
  4. TOPROL-XL [Concomitant]
  5. CYCLOBENZAPRINE HCL [Concomitant]
  6. DARVOCET [Concomitant]
  7. FLUOXETINE [Concomitant]
  8. WELLBUTRIN [Concomitant]
  9. ETODOLAC [Concomitant]
  10. ALPRAZOLAM [Concomitant]
  11. HYDROCODONE [Concomitant]
  12. INSHAPE [Concomitant]
  13. CARBCUTTER [Concomitant]
  14. FOCUSFACTOR [Concomitant]
  15. ZINC [Concomitant]
  16. CHROMIUM [Concomitant]

REACTIONS (3)
  - DRUG RASH WITH EOSINOPHILIA AND SYSTEMIC SYMPTOMS [None]
  - LIVER FUNCTION TEST ABNORMAL [None]
  - THERAPY NON-RESPONDER [None]
